FAERS Safety Report 6169936-8 (Version None)
Quarter: 2009Q2

REPORT INFORMATION
  Report Type: 
  Country: None (occurrence: None)
  Receive Date: 20090428
  Receipt Date: 20090419
  Transmission Date: 20091009
  Serious: Yes (Other)
  Sender: FDA-Public Use
  Company Number: PH-PFIZER INC-2009201372

PATIENT

DRUGS (1)
  1. NORVASC [Suspect]
     Indication: HYPERTENSION
     Dosage: UNK
     Dates: start: 20030101

REACTIONS (5)
  - BLOOD PRESSURE INCREASED [None]
  - MOOD ALTERED [None]
  - MYOCARDIAL INFARCTION [None]
  - PARAESTHESIA [None]
  - TRISMUS [None]
